FAERS Safety Report 15930806 (Version 1)
Quarter: 2019Q1

REPORT INFORMATION
  Report Type: Spontaneous
  Country: US (occurrence: US)
  Receive Date: 20190115
  Receipt Date: 20190115
  Transmission Date: 20190417
  Serious: Yes (Life-Threatening, Hospitalization)
  Sender: FDA-Public Use
  Company Number: None

PATIENT
  Age: 66 Year
  Sex: Male
  Weight: 78.7 kg

DRUGS (1)
  1. PAZOPANIB [Suspect]
     Active Substance: PAZOPANIB
     Route: 048
     Dates: start: 20181029, end: 20181211

REACTIONS (8)
  - Odynophagia [None]
  - Oesophagitis [None]
  - Sepsis [None]
  - Dysphagia [None]
  - Candida infection [None]
  - Oesophageal fistula [None]
  - Malignant neoplasm progression [None]
  - Food intolerance [None]

NARRATIVE: CASE EVENT DATE: 20181211
